FAERS Safety Report 8409943-5 (Version None)
Quarter: 2012Q2

REPORT INFORMATION
  Report Type: 
  Country: None (occurrence: None)
  Receive Date: 20120605
  Receipt Date: 20120604
  Transmission Date: 20120825
  Serious: No
  Sender: FDA-Public Use
  Company Number: US-PFIZER INC-2012116197

PATIENT
  Sex: Male
  Weight: 58.503 kg

DRUGS (6)
  1. SIMVASTATIN [Concomitant]
     Indication: BLOOD CHOLESTEROL INCREASED
     Dosage: UNK
  2. CHANTIX [Suspect]
     Dosage: 1 MG, 2X/DAY
     Route: 048
     Dates: start: 20120101, end: 20120513
  3. BICALUTAMIDE [Concomitant]
     Indication: PROSTATE CANCER
     Dosage: 50 MG, UNK
  4. METFORMIN [Concomitant]
     Indication: DIABETES MELLITUS
     Dosage: UNK
  5. PAROXETINE [Concomitant]
     Indication: DEPRESSION
     Dosage: UNK
  6. CHANTIX [Suspect]
     Indication: SMOKING CESSATION THERAPY
     Dosage: 0.5 MG, 1X/DAY
     Route: 048
     Dates: start: 20120414, end: 20120101

REACTIONS (1)
  - CONSTIPATION [None]
